FAERS Safety Report 10593532 (Version 2)
Quarter: 2014Q4

REPORT INFORMATION
  Report Type: Spontaneous
  Country: US (occurrence: US)
  Receive Date: 20141119
  Receipt Date: 20141119
  Transmission Date: 20150529
  Serious: Yes (Hospitalization)
  Sender: FDA-Public Use
  Company Number: US-BRISTOL-MYERS SQUIBB COMPANY-21544325

PATIENT
  Sex: Male

DRUGS (1)
  1. YERVOY [Suspect]
     Active Substance: IPILIMUMAB

REACTIONS (5)
  - Nausea [Unknown]
  - Haematochezia [Recovering/Resolving]
  - Liver disorder [Unknown]
  - Mucous stools [Recovering/Resolving]
  - Abdominal discomfort [Unknown]
